FAERS Safety Report 24385021 (Version 1)
Quarter: 2024Q3

REPORT INFORMATION
  Report Type: Spontaneous
  Country: US (occurrence: None)
  Receive Date: 20240930
  Receipt Date: 20240930
  Transmission Date: 20241016
  Serious: Yes (unspecified)
  Sender: Public
  Company Number: None

PATIENT
  Age: 17 Year
  Sex: Male

DRUGS (1)
  1. DRONABINOL [Suspect]
     Active Substance: DRONABINOL

REACTIONS (4)
  - Unresponsive to stimuli [None]
  - Seizure [None]
  - Limb injury [None]
  - Fall [None]

NARRATIVE: CASE EVENT DATE: 20240925
